FAERS Safety Report 9782064 (Version 2)
Quarter: 2013Q4

REPORT INFORMATION
  Report Type: Report from Study
  Country: FR (occurrence: FR)
  Receive Date: 20131226
  Receipt Date: 20131226
  Transmission Date: 20140711
  Serious: Yes (Other)
  Sender: FDA-Public Use
  Company Number: FR-ROCHE-1319742

PATIENT
  Age: 69 Year
  Sex: Male
  Weight: 78 kg

DRUGS (8)
  1. RITUXIMAB [Suspect]
     Indication: CHRONIC LYMPHOCYTIC LEUKAEMIA
     Route: 042
     Dates: start: 20130213
  2. RITUXIMAB [Suspect]
     Route: 042
     Dates: start: 20130301
  3. RITUXIMAB [Suspect]
     Route: 042
     Dates: start: 20130315
  4. RITUXIMAB [Suspect]
     Route: 042
     Dates: start: 20130329
  5. FLUDARABINE [Suspect]
     Indication: CHRONIC LYMPHOCYTIC LEUKAEMIA
     Route: 048
     Dates: start: 20130214, end: 20130216
  6. FLUDARABINE [Suspect]
     Route: 048
     Dates: start: 20130316, end: 20130318
  7. BENDAMUSTINE [Concomitant]
     Dosage: FOR LAST 2 CYCLES
     Route: 065
  8. KARDEGIC [Concomitant]
     Indication: TRANSIENT ISCHAEMIC ATTACK
     Route: 048
     Dates: start: 201210

REACTIONS (1)
  - Autoimmune haemolytic anaemia [Recovered/Resolved]
